FAERS Safety Report 21825576 (Version 1)
Quarter: 2023Q1

REPORT INFORMATION
  Report Type: Report from Study
  Country: US (occurrence: US)
  Receive Date: 20230105
  Receipt Date: 20230105
  Transmission Date: 20230417
  Serious: No
  Sender: FDA-Public Use
  Company Number: US-ABBVIE-4209399

PATIENT
  Age: 41 Year
  Sex: Female
  Weight: 93.439 kg

DRUGS (2)
  1. ORILISSA [Suspect]
     Active Substance: ELAGOLIX SODIUM
     Indication: Endometriosis
     Route: 048
  2. INSULIN NOS [Concomitant]
     Active Substance: INSULIN NOS
     Indication: Diabetes mellitus

REACTIONS (2)
  - Abnormal uterine bleeding [Not Recovered/Not Resolved]
  - Uterine spasm [Not Recovered/Not Resolved]

NARRATIVE: CASE EVENT DATE: 20221101
